FAERS Safety Report 6196573-1 (Version None)
Quarter: 2009Q2

REPORT INFORMATION
  Report Type: 
  Country: None (occurrence: None)
  Receive Date: 20090520
  Receipt Date: 20090508
  Transmission Date: 20091009
  Serious: Yes (Hospitalization, Other)
  Sender: FDA-Public Use
  Company Number: US-WATSON-2009-03334

PATIENT
  Sex: Male

DRUGS (6)
  1. PROPAFENONE (WATSON LABORATORIES) [Suspect]
     Indication: ARRHYTHMIA
     Dosage: 225 MG, SINGLE
     Route: 048
     Dates: start: 20090418, end: 20090418
  2. PROPAFENONE (WATSON LABORATORIES) [Suspect]
     Indication: ATRIAL FIBRILLATION
     Dosage: 225 MG, Q8H
     Route: 048
     Dates: start: 20090101, end: 20090301
  3. DILTIAZEM [Suspect]
     Indication: ARRHYTHMIA
     Dosage: 60 MG, SINGLE
     Route: 048
     Dates: start: 20090418, end: 20090418
  4. DILTIAZEM [Suspect]
     Dosage: 60 MG, Q6H
     Route: 048
  5. METOPROLOL [Concomitant]
     Indication: DRUG USE FOR UNKNOWN INDICATION
     Dosage: UNK
     Route: 065
  6. PLAVIX [Concomitant]
     Indication: DRUG USE FOR UNKNOWN INDICATION
     Dosage: UNK
     Route: 065

REACTIONS (6)
  - AZOTAEMIA [None]
  - BLOOD PRESSURE IMMEASURABLE [None]
  - BRADYCARDIA [None]
  - CARDIAC FAILURE CONGESTIVE [None]
  - FALL [None]
  - PULSE ABSENT [None]
